FAERS Safety Report 13616906 (Version 1)
Quarter: 2017Q2

REPORT INFORMATION
  Report Type: Spontaneous
  Country: US (occurrence: US)
  Receive Date: 20170606
  Receipt Date: 20170606
  Transmission Date: 20170830
  Serious: No
  Sender: FDA-Public Use
  Company Number: US-SA-2016SA129246

PATIENT
  Age: 51 Year
  Sex: Female

DRUGS (2)
  1. LANTUS SOLOSTAR [Suspect]
     Active Substance: INSULIN GLARGINE
     Indication: TYPE 1 DIABETES MELLITUS
     Dosage: DOSE:ANYWHERE BETWEEN 40 AND 60 UNITS
     Route: 065
     Dates: start: 2007
  2. SOLOSTAR [Suspect]
     Active Substance: DEVICE
     Indication: TYPE 1 DIABETES MELLITUS
     Dates: start: 2007

REACTIONS (6)
  - Dysphonia [Unknown]
  - Injection site bruising [Unknown]
  - Cough [Unknown]
  - Sinusitis [Unknown]
  - Ear infection [Unknown]
  - Device issue [Unknown]

NARRATIVE: CASE EVENT DATE: 2016
